FAERS Safety Report 14896333 (Version 1)
Quarter: 2018Q2

REPORT INFORMATION
  Report Type: Spontaneous
  Country: DE (occurrence: DE)
  Receive Date: 20180515
  Receipt Date: 20180515
  Transmission Date: 20180711
  Serious: Yes (Hospitalization, Other)
  Sender: FDA-Public Use
  Company Number: DE-WEST-WARD PHARMACEUTICALS CORP.-DE-H14001-18-03874

PATIENT
  Age: 75 Year
  Sex: Male
  Weight: 73 kg

DRUGS (18)
  1. NOVALGIN (METAMIZOLE SODIUM) [Concomitant]
     Active Substance: METAMIZOLE SODIUM
     Indication: PAIN
     Route: 048
  2. 5-FLUOROURACIL [Concomitant]
     Active Substance: FLUOROURACIL
     Route: 041
  3. 5-FLUOROURACIL [Concomitant]
     Active Substance: FLUOROURACIL
     Route: 041
     Dates: start: 20150114, end: 20150513
  4. BERODUAL [Concomitant]
     Active Substance: FENOTEROL HYDROBROMIDE\IPRATROPIUM BROMIDE
     Indication: CHRONIC OBSTRUCTIVE PULMONARY DISEASE
     Dosage: ONE PUFF PRN (AS NEEDED)
     Route: 055
  5. ASPIRIN. [Concomitant]
     Active Substance: ASPIRIN
     Indication: CORONARY ARTERY DISEASE
     Route: 048
  6. BEVACIZUMAB. [Suspect]
     Active Substance: BEVACIZUMAB
     Route: 042
     Dates: start: 20151102, end: 20151123
  7. 5-FLUOROURACIL [Concomitant]
     Active Substance: FLUOROURACIL
     Indication: COLORECTAL CANCER
     Route: 041
     Dates: start: 20141111, end: 20141231
  8. CANDESARTAN. [Concomitant]
     Active Substance: CANDESARTAN
     Indication: CORONARY ARTERY DISEASE
     Route: 048
  9. SPIRONOLACTON [Concomitant]
     Active Substance: SPIRONOLACTONE
     Indication: CORONARY ARTERY DISEASE
     Route: 048
     Dates: start: 201511
  10. 5-FLUOROURACIL [Concomitant]
     Active Substance: FLUOROURACIL
     Route: 040
     Dates: start: 20141111, end: 20141229
  11. FOLINIC ACID [Concomitant]
     Active Substance: LEUCOVORIN
     Indication: COLORECTAL CANCER
     Route: 042
     Dates: start: 20141111, end: 20150511
  12. BEVACIZUMAB. [Suspect]
     Active Substance: BEVACIZUMAB
     Indication: COLORECTAL CANCER METASTATIC
     Route: 042
     Dates: start: 20150608
  13. BEVACIZUMAB. [Suspect]
     Active Substance: BEVACIZUMAB
     Route: 042
     Dates: start: 20141111, end: 20141111
  14. OXALIPLATIN. [Concomitant]
     Active Substance: OXALIPLATIN
     Indication: COLORECTAL CANCER
     Route: 042
     Dates: start: 20150511, end: 20150511
  15. OXALIPLATIN. [Concomitant]
     Active Substance: OXALIPLATIN
     Route: 042
     Dates: start: 20150114, end: 20150415
  16. OXALIPLATIN. [Concomitant]
     Active Substance: OXALIPLATIN
     Route: 042
     Dates: start: 20141111, end: 20141229
  17. CAPECITABINE. [Suspect]
     Active Substance: CAPECITABINE
     Indication: COLORECTAL CANCER
     Dosage: D1 - D14, ONE WEEK REST
     Route: 048
  18. 5-FLUOROURACIL [Concomitant]
     Active Substance: FLUOROURACIL
     Route: 040
     Dates: start: 20150114, end: 20150511

REACTIONS (5)
  - Ascites [Unknown]
  - Poor peripheral circulation [Unknown]
  - Asthenia [Unknown]
  - Thrombophlebitis [Unknown]
  - Cachexia [Unknown]

NARRATIVE: CASE EVENT DATE: 201502
